FAERS Safety Report 10033185 (Version 2)
Quarter: 2014Q1

REPORT INFORMATION
  Report Type: Spontaneous
  Country: US (occurrence: US)
  Receive Date: 20140324
  Receipt Date: 20140324
  Transmission Date: 20141002
  Serious: Yes (Disabling)
  Sender: FDA-Public Use
  Company Number: US-GE HEALTHCARE MEDICAL DIAGNOSTICS-OSCN-PR-0707S-0305

PATIENT
  Age: 58 Year
  Sex: Male

DRUGS (26)
  1. OMNISCAN [Suspect]
     Indication: RENAL FAILURE CHRONIC
     Route: 065
     Dates: start: 20030502, end: 20030502
  2. OMNISCAN [Suspect]
     Indication: DIABETES MELLITUS
     Route: 065
     Dates: start: 20051001, end: 20051001
  3. OMNISCAN [Suspect]
     Indication: PERIPHERAL VASCULAR DISORDER
     Route: 042
     Dates: start: 20051018, end: 20051018
  4. OMNISCAN [Suspect]
     Indication: VERTEBROBASILAR INSUFFICIENCY
  5. OMNISCAN [Suspect]
     Indication: CEREBROVASCULAR ACCIDENT
  6. EPOGEN [Concomitant]
  7. ALTACE [Concomitant]
  8. TRICOR [Concomitant]
  9. RENAGEL [Concomitant]
  10. PHOSLO [Concomitant]
  11. PRANDIN [Concomitant]
  12. FOLTX [Concomitant]
  13. ASPIRIN [Concomitant]
  14. LOPRESSOR [Concomitant]
  15. PLAVIX [Concomitant]
  16. ZEMPLAR [Concomitant]
  17. MINOXIDIL [Concomitant]
  18. SENSIPAR [Concomitant]
  19. NORVASC [Concomitant]
  20. LIPITOR [Concomitant]
  21. LABETALOL [Concomitant]
  22. HYDRALAZINE [Concomitant]
  23. CELLCEPT [Concomitant]
  24. PROGRAF [Concomitant]
  25. PREDNISONE [Concomitant]
  26. RAPAMUNE [Concomitant]

REACTIONS (1)
  - Nephrogenic systemic fibrosis [Not Recovered/Not Resolved]
